FAERS Safety Report 4903328-1 (Version None)
Quarter: 2006Q1

REPORT INFORMATION
  Report Type: 
  Country: None (occurrence: None)
  Receive Date: 20060206
  Receipt Date: 20060206
  Transmission Date: 20060701
  Serious: No
  Sender: FDA-Public Use
  Company Number: None

PATIENT
  Age: 86 Year
  Sex: Male
  Weight: 80 kg

DRUGS (3)
  1. CARVEDILOL [Suspect]
     Indication: CARDIAC FAILURE CONGESTIVE
     Dosage: 6.25 MG PO BID
     Route: 048
  2. CARVEDILOL [Suspect]
     Indication: MYOCARDIAL INFARCTION
     Dosage: 6.25 MG PO BID
     Route: 048
  3. LISINOPRIL [Suspect]
     Dosage: 5 MG PO DAILY
     Route: 048

REACTIONS (1)
  - RASH MACULO-PAPULAR [None]
